FAERS Safety Report 6146117-5 (Version None)
Quarter: 2009Q2

REPORT INFORMATION
  Report Type: 
  Country: None (occurrence: None)
  Receive Date: 20090407
  Receipt Date: 20090331
  Transmission Date: 20091009
  Serious: Yes (Other)
  Sender: FDA-Public Use
  Company Number: US-BAYER-200915220NA

PATIENT
  Age: 62 Year
  Sex: Male
  Weight: 99 kg

DRUGS (7)
  1. AVELOX [Suspect]
     Indication: PNEUMONIA
  2. LIPITOR [Concomitant]
  3. ASPIRIN [Concomitant]
  4. OMEPRAZOLE [Concomitant]
  5. GLUCOVANCE [Concomitant]
  6. ONE A DAY [Concomitant]
  7. CENTRUM SILVER [Concomitant]

REACTIONS (4)
  - FACE OEDEMA [None]
  - HYPERSENSITIVITY [None]
  - PARAESTHESIA ORAL [None]
  - PRURITUS [None]
